FAERS Safety Report 9221214 (Version 1)
Quarter: 2013Q2

REPORT INFORMATION
  Report Type: Spontaneous
  Country: NL (occurrence: NL)
  Receive Date: 20130410
  Receipt Date: 20130410
  Transmission Date: 20140414
  Serious: Yes (Hospitalization)
  Sender: FDA-Public Use
  Company Number: NL-AMGEN-NLDSP2013023908

PATIENT
  Age: 79 Year
  Sex: Female

DRUGS (18)
  1. ARANESP [Suspect]
     Indication: PRODUCT USED FOR UNKNOWN INDICATION
     Dosage: 49 MUG, QWK
     Route: 058
  2. TRIAMCINOLONE ACETONIDE [Concomitant]
     Dosage: 1=10MC
  3. LIDOCAINE [Concomitant]
     Dosage: 3% VAS. CREME FNA
  4. ACENOCOUMAROL [Concomitant]
  5. AMLODIPINE ACTAVIS [Concomitant]
  6. ATORVASTATIN [Concomitant]
  7. BETAHISTINE [Concomitant]
  8. BISOPROLOL FUMARATE [Concomitant]
  9. CALCI CHEW [Concomitant]
  10. FUROSEMIDE [Concomitant]
  11. ISOSORBIDE [Concomitant]
  12. LEVOTHYROXINE [Concomitant]
  13. MOLAXOLE [Concomitant]
  14. PANTOPRAZOLE [Concomitant]
  15. PARACETAMOL [Concomitant]
  16. SPIRIVA RESPIMAT [Concomitant]
  17. SPIRONOLACTONE [Concomitant]
  18. VALSARTAN [Concomitant]

REACTIONS (2)
  - Sense of oppression [Unknown]
  - Pneumonia [Unknown]
